FAERS Safety Report 6612723-4 (Version None)
Quarter: 2010Q1

REPORT INFORMATION
  Report Type: 
  Country: None (occurrence: None)
  Receive Date: 20100303
  Receipt Date: 20100222
  Transmission Date: 20100710
  Serious: Yes (Hospitalization)
  Sender: FDA-Public Use
  Company Number: JP-PFIZER INC-2010025197

PATIENT
  Age: 78 Year
  Sex: Male

DRUGS (8)
  1. SEIBULE [Suspect]
     Indication: DIABETES MELLITUS
     Dosage: 100MG
     Route: 048
     Dates: start: 20100121, end: 20100127
  2. SEIBULE [Suspect]
     Dosage: 150MG
     Route: 048
     Dates: start: 20100128, end: 20100213
  3. AMARYL [Concomitant]
     Dosage: 2 MG, UNK
     Route: 048
  4. ENALAPRIL MALEATE [Concomitant]
     Dosage: 5 MG, UNK
     Route: 048
  5. CHLORMADINONE ACETATE [Concomitant]
     Dosage: 50 MG, UNK
     Route: 048
  6. GASLON [Concomitant]
     Dosage: 4 MG, UNK
     Route: 048
  7. UBRETID [Concomitant]
     Dosage: 10 MG, UNK
     Route: 048
  8. URIEF [Concomitant]
     Dosage: 8 MG, UNK
     Route: 048

REACTIONS (2)
  - ALANINE AMINOTRANSFERASE INCREASED [None]
  - ASPARTATE AMINOTRANSFERASE INCREASED [None]
